FAERS Safety Report 6259880-X (Version None)
Quarter: 2009Q3

REPORT INFORMATION
  Report Type: 
  Country: None (occurrence: None)
  Receive Date: 20090706
  Receipt Date: 20090706
  Transmission Date: 20100115
  Serious: Yes (Life-Threatening)
  Sender: FDA-Public Use
  Company Number: None

PATIENT
  Sex: Female
  Weight: 55.7924 kg

DRUGS (1)
  1. CHANTIX [Suspect]
     Indication: SMOKING CESSATION THERAPY
     Dosage: AS DIRECTED DAILY PO
     Route: 048
     Dates: start: 20070601, end: 20070801

REACTIONS (4)
  - AGGRESSION [None]
  - DEPRESSION [None]
  - STRESS [None]
  - SUICIDAL IDEATION [None]
